FAERS Safety Report 5056575-5 (Version None)
Quarter: 2006Q3

REPORT INFORMATION
  Report Type: 
  Country: None (occurrence: None)
  Receive Date: 20060714
  Receipt Date: 20060705
  Transmission Date: 20061208
  Serious: Yes (Death, Hospitalization)
  Sender: FDA-Public Use
  Company Number: 163-21880-06030273

PATIENT
  Age: 82 Year
  Sex: Female
  Weight: 74.8435 kg

DRUGS (5)
  1. REVLIMID [Suspect]
     Indication: MYELODYSPLASTIC SYNDROME
     Dosage: 1 IN 1 D, ORAL
     Route: 048
     Dates: start: 20060220, end: 20060302
  2. ATENOLOL [Concomitant]
  3. ZOLOFT [Concomitant]
  4. AMBIEN [Concomitant]
  5. IRON (IRON) [Concomitant]

REACTIONS (15)
  - ACUTE LEUKAEMIA [None]
  - ASTHENIA [None]
  - DIARRHOEA [None]
  - DISEASE PROGRESSION [None]
  - DYSPNOEA [None]
  - FULL BLOOD COUNT DECREASED [None]
  - INFECTION [None]
  - INSOMNIA [None]
  - LEUKAEMIA [None]
  - LUNG INFILTRATION [None]
  - MYELITIS [None]
  - MYELODYSPLASTIC SYNDROME [None]
  - PAIN [None]
  - PANCYTOPENIA [None]
  - WEIGHT DECREASED [None]
